FAERS Safety Report 6087911-9 (Version None)
Quarter: 2009Q1

REPORT INFORMATION
  Report Type: 
  Country: None (occurrence: None)
  Receive Date: 20090223
  Receipt Date: 20090216
  Transmission Date: 20090719
  Serious: Yes (Hospitalization, Other)
  Sender: FDA-Public Use
  Company Number: CA-ROXANE LABORATORIES, INC.-2009-RO-00152RO

PATIENT
  Age: 2 Year
  Sex: Male

DRUGS (7)
  1. DEXAMETHASONE TAB [Suspect]
     Indication: B PRECURSOR TYPE ACUTE LEUKAEMIA
  2. DEXAMETHASONE TAB [Suspect]
     Indication: LYMPHOHISTIOCYTOSIS
  3. VINCRISTINE [Suspect]
     Indication: B PRECURSOR TYPE ACUTE LEUKAEMIA
  4. PEG-ASPARAGINASE [Suspect]
     Indication: B PRECURSOR TYPE ACUTE LEUKAEMIA
  5. BROAD-SPECTRUM ANTIBIOTICS [Suspect]
     Indication: PYREXIA
  6. M-M-R II [Suspect]
     Indication: IMMUNISATION
  7. PLATELETS [Concomitant]
     Indication: INTERNATIONAL NORMALISED RATIO INCREASED

REACTIONS (2)
  - INTERNATIONAL NORMALISED RATIO INCREASED [None]
  - LYMPHOHISTIOCYTOSIS [None]
